FAERS Safety Report 24273924 (Version 1)
Quarter: 2024Q3

REPORT INFORMATION
  Report Type: Spontaneous
  Country: US (occurrence: US)
  Receive Date: 20240902
  Receipt Date: 20240902
  Transmission Date: 20241016
  Serious: No
  Sender: ASTELLAS
  Company Number: US-ASTELLAS-2024US010736

PATIENT
  Age: 84 Year
  Sex: Male

DRUGS (4)
  1. XTANDI [Suspect]
     Active Substance: ENZALUTAMIDE
     Indication: Prostate cancer metastatic
     Dosage: 160 MG, UNKNOWN FREQ.
     Route: 048
  2. XTANDI [Suspect]
     Active Substance: ENZALUTAMIDE
     Dosage: 40 MG, ONCE DAILY (ONE PILL A DAY)
     Route: 048
     Dates: start: 202403
  3. XTANDI [Suspect]
     Active Substance: ENZALUTAMIDE
     Dosage: 120 MG, UNKNOWN FREQ.
     Route: 048
  4. XTANDI [Suspect]
     Active Substance: ENZALUTAMIDE
     Dosage: 160 MG, UNKNOWN FREQ.
     Route: 048

REACTIONS (2)
  - Product prescribing issue [Unknown]
  - Incorrect dose administered [Unknown]

NARRATIVE: CASE EVENT DATE: 20240301
